FAERS Safety Report 24037418 (Version 3)
Quarter: 2024Q3

REPORT INFORMATION
  Report Type: Report from Study
  Country: US (occurrence: US)
  Receive Date: 20240702
  Receipt Date: 20240829
  Transmission Date: 20241017
  Serious: No
  Sender: SANOFI AVENTIS
  Company Number: US-SANOFI-02106794

PATIENT
  Age: 76 Year
  Sex: Female
  Weight: 165 kg

DRUGS (3)
  1. SARILUMAB [Suspect]
     Active Substance: SARILUMAB
     Indication: Polymyalgia rheumatica
     Dosage: 200 MG, QOW
     Route: 058
     Dates: start: 20240222
  2. PREDNISONE [Suspect]
     Active Substance: PREDNISONE
     Indication: Polymyalgia rheumatica
     Dosage: UNK
     Route: 065
     Dates: start: 202210
  3. PREDNISONE [Suspect]
     Active Substance: PREDNISONE
     Dosage: 13 MG AND REDUCING BY 1 MG EVERY 6 WEEKS.

REACTIONS (1)
  - Alopecia [Not Recovered/Not Resolved]
